FAERS Safety Report 7768032-3 (Version None)
Quarter: 2011Q3

REPORT INFORMATION
  Report Type: 
  Country: None (occurrence: None)
  Receive Date: 20110922
  Receipt Date: 20110223
  Transmission Date: 20111222
  Serious: Yes (Other)
  Sender: FDA-Public Use
  Company Number: US-ASTRAZENECA-2011SE03858

PATIENT
  Age: 55 Year
  Sex: Female

DRUGS (10)
  1. SEROQUEL [Suspect]
     Indication: BIPOLAR DISORDER
     Route: 048
     Dates: start: 20060101
  2. CITALOPRAM HYDROBROMIDE [Concomitant]
  3. CLONOPIN [Concomitant]
  4. BUSPIRONE HCL [Concomitant]
  5. DIPHENHYDRAM [Concomitant]
  6. TRAZODONE HCL [Concomitant]
  7. CELEXA [Concomitant]
  8. AMITRIPTYLINE HCL [Concomitant]
  9. CELEXA [Concomitant]
  10. CLONAZEPAM [Concomitant]

REACTIONS (5)
  - SUICIDE ATTEMPT [None]
  - DISABILITY [None]
  - PANIC ATTACK [None]
  - DYSKINESIA [None]
  - FATIGUE [None]
